FAERS Safety Report 7419376-6 (Version None)
Quarter: 2011Q2

REPORT INFORMATION
  Report Type: 
  Country: None (occurrence: None)
  Receive Date: 20110415
  Receipt Date: 20110409
  Transmission Date: 20111010
  Serious: Yes (Other)
  Sender: FDA-Public Use
  Company Number: US-RB-025520-11

PATIENT
  Age: 47 Year
  Sex: Female

DRUGS (3)
  1. SUBOXONE [Suspect]
     Indication: PRODUCT USED FOR UNKNOWN INDICATION
     Dosage: SUBLINGUAL FILM; DOSING INFORMATION UNKNOWN
     Route: 065
     Dates: start: 20110101
  2. ANTI-DEPRESSANTS [Suspect]
     Indication: PRODUCT USED FOR UNKNOWN INDICATION
     Dosage: UNKNOWN DOSING DETAILS
     Route: 065
  3. VALIUM [Suspect]
     Indication: PRODUCT USED FOR UNKNOWN INDICATION
     Dosage: UNKNOWN DOSING DETAILS
     Route: 065

REACTIONS (11)
  - HALLUCINATION, AUDITORY [None]
  - SPEECH DISORDER [None]
  - PAIN [None]
  - MENTAL IMPAIRMENT [None]
  - DEPRESSION [None]
  - DRUG WITHDRAWAL SYNDROME [None]
  - CONFUSIONAL STATE [None]
  - DYSGRAPHIA [None]
  - UNDERDOSE [None]
  - MEMORY IMPAIRMENT [None]
  - CRYING [None]
